FAERS Safety Report 22586848 (Version 1)
Quarter: 2023Q2

REPORT INFORMATION
  Report Type: Spontaneous
  Country: JP (occurrence: JP)
  Receive Date: 20230611
  Receipt Date: 20230611
  Transmission Date: 20230721
  Serious: Yes (Other)
  Sender: FDA-Public Use
  Company Number: JP-ASTELLAS-2023JP005849

PATIENT
  Age: 80 Year
  Sex: Male

DRUGS (2)
  1. LINACLOTIDE [Suspect]
     Active Substance: LINACLOTIDE
     Indication: Constipation
     Route: 048
  2. LINACLOTIDE [Suspect]
     Active Substance: LINACLOTIDE
     Indication: Constipation
     Dosage: UNKNOWN FREQ.
     Route: 048

REACTIONS (1)
  - Cystitis haemorrhagic [Unknown]

NARRATIVE: CASE EVENT DATE: 20230518
